FAERS Safety Report 16009577 (Version 2)
Quarter: 2019Q2

REPORT INFORMATION
  Report Type: Spontaneous
  Country: US (occurrence: US)
  Receive Date: 20190226
  Receipt Date: 20190404
  Transmission Date: 20190711
  Serious: No
  Sender: FDA-Public Use
  Company Number: US-ASTRAZENECA-2019SE18769

PATIENT
  Sex: Male
  Weight: 72.6 kg

DRUGS (3)
  1. COMBIVENT [Concomitant]
     Active Substance: ALBUTEROL SULFATE\IPRATROPIUM BROMIDE
     Indication: INHALATION THERAPY
     Dosage: AS REQUIRED
     Route: 055
  2. ALBUTEROL. [Concomitant]
     Active Substance: ALBUTEROL
     Indication: INHALATION THERAPY
     Dosage: AS REQUIRED
     Route: 055
  3. SYMBICORT [Suspect]
     Active Substance: BUDESONIDE\FORMOTEROL FUMARATE DIHYDRATE
     Indication: EMPHYSEMA
     Dosage: 160/4.5 MCG 120 INHALATIONS, TWO TIMES A DAY
     Route: 055

REACTIONS (7)
  - Incorrect dose administered [Unknown]
  - Off label use [Not Recovered/Not Resolved]
  - Product use issue [Unknown]
  - Dyspnoea [Unknown]
  - Intentional product misuse [Not Recovered/Not Resolved]
  - Incorrect dose administered [Not Recovered/Not Resolved]
  - Device issue [Unknown]
